FAERS Safety Report 14987506 (Version 1)
Quarter: 2018Q2

REPORT INFORMATION
  Report Type: Spontaneous
  Country: US (occurrence: US)
  Receive Date: 20180608
  Receipt Date: 20180608
  Transmission Date: 20180711
  Serious: Yes (Death)
  Sender: FDA-Public Use
  Company Number: US-ROCHE-2137048

PATIENT
  Age: 87 Year
  Sex: Male

DRUGS (5)
  1. OMEPRAZOLE. [Concomitant]
     Active Substance: OMEPRAZOLE
  2. BRILINTA [Concomitant]
     Active Substance: TICAGRELOR
  3. METOPROLOL. [Concomitant]
     Active Substance: METOPROLOL
  4. SYNTHROID [Concomitant]
     Active Substance: LEVOTHYROXINE SODIUM
  5. ESBRIET [Suspect]
     Active Substance: PIRFENIDONE
     Indication: CARDIAC DISORDER
     Route: 048
     Dates: start: 20180106

REACTIONS (1)
  - Death [Fatal]

NARRATIVE: CASE EVENT DATE: 20180604
